FAERS Safety Report 5177585-3 (Version None)
Quarter: 2006Q4

REPORT INFORMATION
  Report Type: 
  Country: None (occurrence: None)
  Receive Date: 20061218
  Receipt Date: 20061114
  Transmission Date: 20070319
  Serious: Yes (Hospitalization)
  Sender: FDA-Public Use
  Company Number: PHNU2006DE03791

PATIENT
  Age: 12 Year
  Sex: Female
  Weight: 31 kg

DRUGS (3)
  1. OXCARBAZEPINE [Suspect]
     Indication: EPILEPSY
     Dosage: 720 MG/D
     Dates: start: 20061010, end: 20061123
  2. CLOBAZAM [Concomitant]
     Dosage: 15 MG/D
     Dates: start: 20061026
  3. VALPROATE SODIUM [Concomitant]
     Indication: EPILEPSY
     Dosage: 1080 MG/D
     Dates: end: 20061120

REACTIONS (6)
  - BRAIN OEDEMA [None]
  - HYPONATRAEMIA [None]
  - INAPPROPRIATE ANTIDIURETIC HORMONE SECRETION [None]
  - OEDEMA [None]
  - RESPIRATORY TRACT INFECTION [None]
  - WEIGHT INCREASED [None]
